FAERS Safety Report 5057203-5 (Version None)
Quarter: 2006Q3

REPORT INFORMATION
  Report Type: 
  Country: None (occurrence: None)
  Receive Date: 20060721
  Receipt Date: 20050609
  Transmission Date: 20061208
  Serious: No
  Sender: FDA-Public Use
  Company Number: US-GLAXOSMITHKLINE-A0562013A

PATIENT
  Age: 76 Year
  Sex: Female

DRUGS (8)
  1. AVANDIA [Suspect]
     Dosage: 8MG PER DAY
     Route: 048
     Dates: start: 20050516
  2. METAGLIP [Concomitant]
  3. IBUPROFEN [Concomitant]
  4. ENALAPRIL MALEATE [Concomitant]
  5. CENTRUM SILVER [Concomitant]
  6. ASCORBIC ACID [Concomitant]
  7. ALPHA LIPOIC ACID [Concomitant]
  8. VASOTEC [Concomitant]

REACTIONS (4)
  - BLOOD GLUCOSE DECREASED [None]
  - FATIGUE [None]
  - TREMOR [None]
  - WEIGHT INCREASED [None]
